FAERS Safety Report 10485070 (Version 1)
Quarter: 2014Q3

REPORT INFORMATION
  Report Type: Spontaneous
  Country: AL (occurrence: AL)
  Receive Date: 20140930
  Receipt Date: 20140930
  Transmission Date: 20150326
  Serious: Yes (Hospitalization)
  Sender: FDA-Public Use
  Company Number: AL-BAYER-2014-140497

PATIENT
  Age: 45 Year
  Sex: Female

DRUGS (1)
  1. CLOTRIMAZOLE. [Suspect]
     Active Substance: CLOTRIMAZOLE
     Indication: FUNGAL SKIN INFECTION
     Dosage: UNK
     Route: 061

REACTIONS (6)
  - Skin lesion [None]
  - Septic shock [Recovering/Resolving]
  - Dermatitis bullous [None]
  - Drug hypersensitivity [None]
  - Superinfection [Recovering/Resolving]
  - Gangrene [Recovering/Resolving]
